FAERS Safety Report 8320561-X (Version None)
Quarter: 2012Q2

REPORT INFORMATION
  Report Type: 
  Country: None (occurrence: None)
  Receive Date: 20120430
  Receipt Date: 20120423
  Transmission Date: 20120825
  Serious: Yes (Hospitalization, Other)
  Sender: FDA-Public Use
  Company Number: US-PFIZER INC-2012067525

PATIENT
  Sex: Female

DRUGS (18)
  1. STOOL SOFTENER [Concomitant]
     Dosage: UNK
  2. TRICOR [Concomitant]
     Dosage: 145 MG, 1X/DAY
     Route: 048
  3. MS CONTIN [Concomitant]
     Dosage: 15 MG X R 12 H
     Route: 048
  4. LIPITOR [Concomitant]
     Dosage: 40 MG, 1X/DAY, EVERY NIGHT
     Route: 048
  5. LEVOTHYROXINE SODIUM [Concomitant]
     Dosage: 25 UG, 1X/DAY (ON EMPTY STOMACH)
  6. BUTRANS [Concomitant]
     Dosage: 10 MCG/HR PTWK, EVERY WEEK
  7. VITA-B [Concomitant]
     Dosage: UNK
  8. METOPROLOL SUCCINATE [Concomitant]
     Dosage: 25 MG, 1X/DAY
     Route: 048
  9. ALPRAZOLAM [Concomitant]
     Dosage: 0.5 MG, UNK
  10. AMLODIPINE BESILATE [Concomitant]
     Dosage: 2.5 MG, 1X/DAY
     Route: 048
  11. LOPERAMIDE [Concomitant]
     Dosage: 25 MG, 1X/DAY, AFTER EACH LOOSE BM, UP TO 4 TABS PER DAY
  12. GABAPENTIN [Concomitant]
     Dosage: 100 MG, 2 TABS BY MOUTH DAILY
  13. VITAMIN D [Concomitant]
     Dosage: 1 DF, 1X/DAY
     Route: 048
  14. SUTENT [Suspect]
     Indication: RENAL CELL CARCINOMA
     Dosage: 50 MG, 1X/DAY X 4 WKS OFF 2 WKS
     Route: 048
     Dates: start: 20120306, end: 20120312
  15. GABAPENTIN [Concomitant]
     Dosage: 200 MG, 1X/DAY
     Route: 048
  16. ARANESP [Concomitant]
     Dosage: 100 UG/ML, WEEKLY
  17. LANTUS [Concomitant]
     Dosage: 100 UNIT/ML, 4 UNITS IN AM
  18. NOVOLOG [Concomitant]
     Dosage: UP TO 20 UNITS, DAILY (IN DIVIDED DOSE AS DIRECTED)
     Route: 058

REACTIONS (26)
  - VIRAL INFECTION [None]
  - DEHYDRATION [None]
  - HYPERTENSION [None]
  - BLOOD THYROID STIMULATING HORMONE INCREASED [None]
  - DRY SKIN [None]
  - ABDOMINAL PAIN [None]
  - PAIN [None]
  - CONSTIPATION [None]
  - FLANK PAIN [None]
  - GRAM STAIN [None]
  - ASTHENIA [None]
  - LEUKOPENIA [None]
  - FATIGUE [None]
  - DYSPNOEA EXERTIONAL [None]
  - DIARRHOEA [None]
  - NAUSEA [None]
  - VOMITING [None]
  - URINE COLOUR ABNORMAL [None]
  - DEPRESSION [None]
  - ANAEMIA [None]
  - ORAL PAIN [None]
  - WEIGHT DECREASED [None]
  - SKIN EXFOLIATION [None]
  - ABDOMINAL MASS [None]
  - SKIN BURNING SENSATION [None]
  - BLISTER [None]
